FAERS Safety Report 7869812-6 (Version None)
Quarter: 2011Q4

REPORT INFORMATION
  Report Type: 
  Country: None (occurrence: None)
  Receive Date: 20111028
  Receipt Date: 20110110
  Transmission Date: 20120403
  Serious: No
  Sender: FDA-Public Use
  Company Number: US-AMGEN-USASP2011001370

PATIENT
  Age: 55 Year
  Sex: Female
  Weight: 48.073 kg

DRUGS (4)
  1. METHOTREXATE [Concomitant]
     Dosage: 2.5 MG, UNK
     Route: 048
  2. INDOMETHACIN [Concomitant]
     Dosage: 25 MG, UNK
     Route: 048
  3. FOLGARD                            /00024201/ [Concomitant]
     Route: 048
  4. ENBREL [Suspect]
     Indication: PRODUCT USED FOR UNKNOWN INDICATION
     Dosage: 50 MG, QWK
     Route: 058

REACTIONS (2)
  - FATIGUE [None]
  - PAIN OF SKIN [None]
